FAERS Safety Report 6868202-2 (Version None)
Quarter: 2010Q3

REPORT INFORMATION
  Report Type: 
  Country: None (occurrence: None)
  Receive Date: 20100722
  Receipt Date: 20080529
  Transmission Date: 20110219
  Serious: No
  Sender: FDA-Public Use
  Company Number: US-PFIZER INC-2008044524

PATIENT
  Sex: Male
  Weight: 76.4 kg

DRUGS (4)
  1. CHANTIX [Suspect]
     Indication: SMOKING CESSATION THERAPY
     Route: 048
     Dates: start: 20080501
  2. XANAX [Interacting]
     Indication: ANXIETY
     Route: 048
     Dates: end: 20080501
  3. KALETRA [Concomitant]
  4. TRUVADA [Concomitant]

REACTIONS (9)
  - ANXIETY [None]
  - DRUG INEFFECTIVE [None]
  - DRUG INTERACTION [None]
  - DRUG WITHDRAWAL SYNDROME [None]
  - DYSPEPSIA [None]
  - HEADACHE [None]
  - SOMNOLENCE [None]
  - TOBACCO USER [None]
  - TREMOR [None]
